FAERS Safety Report 14776835 (Version 1)
Quarter: 2018Q2

REPORT INFORMATION
  Report Type: Spontaneous
  Country: FR (occurrence: FR)
  Receive Date: 20180419
  Receipt Date: 20180419
  Transmission Date: 20180711
  Serious: Yes (Hospitalization)
  Sender: FDA-Public Use
  Company Number: FR-009507513-1804FRA007536

PATIENT
  Age: 33 Year
  Sex: Female

DRUGS (2)
  1. ACETAMINOPHEN. [Suspect]
     Active Substance: ACETAMINOPHEN
     Indication: POISONING DELIBERATE
     Dosage: 36 G, UNK
     Route: 048
     Dates: start: 20180315, end: 20180315
  2. AERIUS [Suspect]
     Active Substance: DESLORATADINE
     Indication: POISONING DELIBERATE
     Dosage: 55 MG, UNK
     Route: 048
     Dates: start: 20180315, end: 20180315

REACTIONS (1)
  - Coma [Recovered/Resolved]

NARRATIVE: CASE EVENT DATE: 20180315
